FAERS Safety Report 7436720-4 (Version None)
Quarter: 2011Q2

REPORT INFORMATION
  Report Type: 
  Country: None (occurrence: None)
  Receive Date: 20110426
  Receipt Date: 20110414
  Transmission Date: 20111010
  Serious: Yes (Other)
  Sender: FDA-Public Use
  Company Number: JP-BAYER-201014181BYL

PATIENT
  Age: 73 Year
  Sex: Male
  Weight: 68 kg

DRUGS (10)
  1. NU-LOTAN [Concomitant]
     Dosage: 25 MG (DAILY DOSE), , ORAL
     Route: 048
     Dates: start: 20100301
  2. CALBLOCK [Concomitant]
     Dosage: 16 MG (DAILY DOSE), , ORAL
     Route: 048
     Dates: start: 20070101
  3. LANTUS [Concomitant]
     Dosage: 3 U (DAILY DOSE), , INTRAVENOUS
     Route: 042
     Dates: start: 20090101
  4. MIYA BM [Concomitant]
     Indication: DIARRHOEA
     Dosage: 3 G (DAILY DOSE), , ORAL
     Route: 048
     Dates: start: 20100701
  5. HUMALOG [Concomitant]
     Dosage: 22 U (DAILY DOSE), , INTRAVENOUS
     Route: 042
     Dates: start: 20070101
  6. NEXAVAR [Suspect]
     Indication: HEPATIC NEOPLASM MALIGNANT
     Dosage: 400 MG (DAILY DOSE), , ORAL
     Route: 048
     Dates: start: 20100719
  7. LASIX [Concomitant]
     Dosage: 20 MG (DAILY DOSE), , UNKNOWN
     Route: 065
     Dates: start: 20091028
  8. URSO 250 [Concomitant]
     Dosage: 300 MG (DAILY DOSE), , ORAL
     Route: 048
     Dates: start: 20070101
  9. PARIET [Concomitant]
     Dosage: 10 MG (DAILY DOSE), , ORAL
     Route: 048
     Dates: start: 20070101
  10. PROMAC [POLAPREZINC] [Concomitant]
     Dosage: 150 MG (DAILY DOSE), , ORAL
     Route: 048
     Dates: start: 20090101

REACTIONS (6)
  - FATIGUE [None]
  - DIARRHOEA [None]
  - TOXIC ENCEPHALOPATHY [None]
  - ASCITES [None]
  - BLOOD URIC ACID INCREASED [None]
  - PALMAR-PLANTAR ERYTHRODYSAESTHESIA SYNDROME [None]
